FAERS Safety Report 5565846-5 (Version None)
Quarter: 2007Q4

REPORT INFORMATION
  Report Type: 
  Country: None (occurrence: None)
  Receive Date: 20071213
  Receipt Date: 20071128
  Transmission Date: 20080405
  Serious: Yes (Hospitalization)
  Sender: FDA-Public Use
  Company Number: DSJ-2007-09917

PATIENT
  Age: 79 Year
  Sex: Female
  Weight: 47 kg

DRUGS (9)
  1. OLMESARTAN MEDOXOMIL [Suspect]
     Indication: ESSENTIAL HYPERTENSION
     Dosage: 40 MG (20 MG, 2 IN 1 D), PER ORAL
     Route: 048
     Dates: start: 20060905
  2. ARTIST (CARVEDILOL) (CARVEDILOL) [Concomitant]
  3. MICARDIS [Concomitant]
  4. ADALAT [Concomitant]
  5. AMARYL [Concomitant]
  6. BASEN (VOGLIBOSE) (VOGLIBOSE) [Concomitant]
  7. GASTER D (FAMOTIDINE) (FAMOTIDINE) [Concomitant]
  8. RIZE (CLOTIAZEPAM) (CLOTIAZEPAM) [Concomitant]
  9. LIPITOR (ATORVASTATIN CALCIUM) (ATORVASTATIN CALCIUM) [Concomitant]

REACTIONS (2)
  - ATRIAL FIBRILLATION [None]
  - CARDIAC FAILURE ACUTE [None]
